FAERS Safety Report 6126205-X (Version None)
Quarter: 2009Q1

REPORT INFORMATION
  Report Type: 
  Country: None (occurrence: None)
  Receive Date: 20090320
  Receipt Date: 20090316
  Transmission Date: 20090719
  Serious: Yes (Hospitalization)
  Sender: FDA-Public Use
  Company Number: B0565160A

PATIENT
  Age: 69 Year
  Sex: Female

DRUGS (11)
  1. AVANDAMET [Suspect]
     Route: 048
     Dates: end: 20090303
  2. ASPIRIN [Concomitant]
  3. FELODIPINE [Concomitant]
  4. CHLORPROMAZINE [Concomitant]
  5. FERSADAY [Concomitant]
  6. ZOPICLONE [Concomitant]
  7. FLUPENTIXOL [Concomitant]
  8. FUROSEMIDE [Concomitant]
  9. LISINOPRIL [Concomitant]
  10. PROCYCLIDINE HYDROCHLORIDE [Concomitant]
  11. SIMVASTATIN [Concomitant]

REACTIONS (3)
  - CARDIAC FAILURE CONGESTIVE [None]
  - MYOCARDIAL ISCHAEMIA [None]
  - RENAL IMPAIRMENT [None]
